FAERS Safety Report 8279876-6 (Version None)
Quarter: 2012Q2

REPORT INFORMATION
  Report Type: 
  Country: None (occurrence: None)
  Receive Date: 20120412
  Receipt Date: 20120202
  Transmission Date: 20120825
  Serious: Yes (Other)
  Sender: FDA-Public Use
  Company Number: US-ASTRAZENECA-2012SE07381

PATIENT
  Age: 73 Year
  Sex: Male
  Weight: 84.8 kg

DRUGS (4)
  1. FERROUS SULFATE TAB [Interacting]
     Route: 065
     Dates: start: 19990101
  2. NEXIUM [Suspect]
     Indication: GASTROOESOPHAGEAL REFLUX DISEASE
     Route: 048
     Dates: start: 19980101
  3. FOOD SUPPLEMENT [Concomitant]
  4. FERROUS SULFATE TAB [Interacting]
     Dosage: THERE WAS A TIME WHEN HE TOOK 65 MG THREE TIMES A DAY
     Route: 065

REACTIONS (6)
  - ANAEMIA [None]
  - DRUG INTERACTION [None]
  - RED BLOOD CELL COUNT DECREASED [None]
  - DRUG DOSE OMISSION [None]
  - FULL BLOOD COUNT DECREASED [None]
  - PANIC REACTION [None]
